FAERS Safety Report 7179117-7 (Version None)
Quarter: 2010Q4

REPORT INFORMATION
  Report Type: 
  Country: None (occurrence: None)
  Receive Date: 20101221
  Receipt Date: 20101215
  Transmission Date: 20110411
  Serious: Yes (Disabling, Other)
  Sender: FDA-Public Use
  Company Number: US-PFIZER INC-2008157703

PATIENT
  Sex: Female
  Weight: 68 kg

DRUGS (8)
  1. PREMARIN [Suspect]
     Indication: HORMONE REPLACEMENT THERAPY
     Dosage: 0.9 MG, UNK
     Route: 048
     Dates: start: 19990511, end: 20051201
  2. MEDROXYPROGESTERONE ACETATE [Suspect]
     Indication: HORMONE REPLACEMENT THERAPY
     Dosage: UNK
  3. ESTROGENS [Suspect]
     Indication: HORMONE REPLACEMENT THERAPY
  4. PROGESTOGENS AND ESTROGENS IN COMBINATION [Suspect]
     Indication: HORMONE REPLACEMENT THERAPY
  5. PROTONIX [Concomitant]
     Indication: GASTROOESOPHAGEAL REFLUX DISEASE
     Dosage: UNK
     Dates: start: 20010101
  6. DETROL [Concomitant]
     Indication: MICTURITION URGENCY
     Dosage: UNK
     Dates: start: 19970101
  7. LEXAPRO [Concomitant]
     Indication: DEPRESSION
     Dosage: UNK
     Dates: start: 19990101
  8. LEXAPRO [Concomitant]
     Indication: ANXIETY

REACTIONS (1)
  - BREAST CANCER FEMALE [None]
